FAERS Safety Report 5884563-5 (Version None)
Quarter: 2008Q3

REPORT INFORMATION
  Report Type: 
  Country: None (occurrence: None)
  Receive Date: 20080915
  Receipt Date: 20080915
  Transmission Date: 20090109
  Serious: Yes (Other)
  Sender: FDA-Public Use
  Company Number: None

PATIENT
  Age: 50 Year
  Sex: Female
  Weight: 87.9978 kg

DRUGS (1)
  1. LEVOTHYROXINE SODIUM [Suspect]
     Indication: HYPOTHYROIDISM
     Dosage: 175MCG
     Dates: start: 20070101

REACTIONS (2)
  - DRUG EFFECT DECREASED [None]
  - PHARMACEUTICAL PRODUCT COMPLAINT [None]
